FAERS Safety Report 23627145 (Version 2)
Quarter: 2024Q2

REPORT INFORMATION
  Report Type: Report from Study
  Country: US (occurrence: US)
  Receive Date: 20240313
  Receipt Date: 20240606
  Transmission Date: 20240716
  Serious: No
  Sender: FDA-Public Use
  Company Number: US-SPRINGWORKS THERAPEUTICS-SW-001321

PATIENT
  Sex: Female

DRUGS (2)
  1. NIROGACESTAT [Suspect]
     Active Substance: NIROGACESTAT
     Indication: Product used for unknown indication
     Dosage: 150 MILLIGRAM, BID
     Route: 048
     Dates: start: 20240130
  2. NIROGACESTAT [Suspect]
     Active Substance: NIROGACESTAT
     Dosage: 2 TABLETS, MORNING AND EVENING

REACTIONS (1)
  - Diarrhoea [Not Recovered/Not Resolved]
